FAERS Safety Report 4717589-5 (Version None)
Quarter: 2005Q3

REPORT INFORMATION
  Report Type: 
  Country: None (occurrence: None)
  Receive Date: 20050712
  Receipt Date: 20050513
  Transmission Date: 20060218
  Serious: No
  Sender: FDA-Public Use
  Company Number: 2005S1000095

PATIENT
  Age: 59 Year
  Sex: Female
  Weight: 62 kg

DRUGS (9)
  1. CUBICIN [Suspect]
     Indication: PNEUMONIA STREPTOCOCCAL
     Dosage: 6 MG/KG;Q24H;IV
     Route: 042
     Dates: start: 20050501, end: 20050514
  2. CUBICIN [Suspect]
     Indication: STAPHYLOCOCCAL OSTEOMYELITIS
     Dosage: 6 MG/KG;Q24H;IV
     Route: 042
     Dates: start: 20050501, end: 20050514
  3. CUBICIN [Suspect]
     Indication: STREPTOCOCCAL BACTERAEMIA
     Dosage: 6 MG/KG;Q24H;IV
     Route: 042
     Dates: start: 20050501, end: 20050514
  4. VANCOMYCIN [Concomitant]
  5. LINEZOLID [Concomitant]
  6. LOPRESSOR [Concomitant]
  7. PROTONIX [Concomitant]
  8. CEFTRIAXONE [Concomitant]
  9. LEVAQUIN [Concomitant]

REACTIONS (3)
  - ARTHRALGIA [None]
  - BLOOD CREATINE PHOSPHOKINASE INCREASED [None]
  - MYOPATHY [None]
